FAERS Safety Report 12510667 (Version 1)
Quarter: 2016Q2

REPORT INFORMATION
  Report Type: Spontaneous
  Country: US (occurrence: US)
  Receive Date: 20160629
  Receipt Date: 20160629
  Transmission Date: 20160815
  Serious: Yes (Hospitalization)
  Sender: FDA-Public Use
  Company Number: US-LUNDBECK-DKLU2015592

PATIENT
  Age: 5 Year
  Sex: Female

DRUGS (1)
  1. SABRIL [Suspect]
     Active Substance: VIGABATRIN
     Indication: SEIZURE
     Route: 048
     Dates: start: 20150826

REACTIONS (3)
  - Ear infection [Unknown]
  - Pyrexia [Unknown]
  - Bronchitis [Unknown]

NARRATIVE: CASE EVENT DATE: 201605
